FAERS Safety Report 4516273-0 (Version None)
Quarter: 2004Q4

REPORT INFORMATION
  Report Type: 
  Country: None (occurrence: None)
  Receive Date: 20041005
  Receipt Date: 20031205
  Transmission Date: 20050328
  Serious: Yes (Other)
  Sender: FDA-Public Use
  Company Number: 03-348-0772

PATIENT
  Age: 34 Year
  Sex: Female
  Weight: 82.1011 kg

DRUGS (1)
  1. HALOPERIDOL DECANOATE [Suspect]
     Indication: PSYCHOTIC DISORDER
     Dosage: 300MG IM Q4 WEEKS
     Route: 030
     Dates: start: 20031110, end: 20031208

REACTIONS (1)
  - INJECTION SITE REACTION [None]
